FAERS Safety Report 5811806-6 (Version None)
Quarter: 2008Q3

REPORT INFORMATION
  Report Type: 
  Country: None (occurrence: None)
  Receive Date: 20080715
  Receipt Date: 20080715
  Transmission Date: 20090109
  Serious: No
  Sender: FDA-Public Use
  Company Number: None

PATIENT
  Sex: Male

DRUGS (1)
  1. HUMIRA [Suspect]
     Dosage: 40MG/0.8ML EVERY OTHER WEEK SQ
     Route: 058

REACTIONS (1)
  - INFLUENZA LIKE ILLNESS [None]
